FAERS Safety Report 12289635 (Version 1)
Quarter: 2016Q2

REPORT INFORMATION
  Report Type: Spontaneous
  Country: US (occurrence: US)
  Receive Date: 20160421
  Receipt Date: 20160421
  Transmission Date: 20160815
  Serious: No
  Sender: FDA-Public Use
  Company Number: US-TEVA-554136USA

PATIENT

DRUGS (1)
  1. CEFALEXIN [Suspect]
     Active Substance: CEPHALEXIN
     Route: 065

REACTIONS (3)
  - Product odour abnormal [Unknown]
  - Ulcer [Unknown]
  - Blister [Unknown]
